FAERS Safety Report 7106189-8 (Version None)
Quarter: 2010Q4

REPORT INFORMATION
  Report Type: 
  Country: None (occurrence: None)
  Receive Date: 20101116
  Receipt Date: 20100301
  Transmission Date: 20110411
  Serious: Yes (Other)
  Sender: FDA-Public Use
  Company Number: US-BAYER-US-2007-040724

PATIENT
  Age: 63 Year
  Sex: Male
  Weight: 106 kg

DRUGS (84)
  1. MAGNEVIST [Suspect]
     Indication: ANGIOGRAM
     Dosage: TOTAL DAILY DOSE: 20 ML
     Dates: start: 19970822, end: 19970822
  2. MAGNEVIST [Suspect]
     Dates: start: 19980611, end: 19980611
  3. MAGNEVIST [Suspect]
     Dates: start: 20000912, end: 20000912
  4. MAGNEVIST [Suspect]
     Dates: start: 20030729, end: 20030729
  5. MAGNEVIST [Suspect]
     Dates: start: 20010214, end: 20010214
  6. OMNISCAN [Suspect]
     Indication: NUCLEAR MAGNETIC RESONANCE IMAGING BRAIN
  7. UNSPECIFIED GADOLINIUM BASED CONTRAST AGENT [Suspect]
     Indication: NUCLEAR MAGNETIC RESONANCE IMAGING
     Dates: start: 20000908, end: 20000908
  8. IRON SULFATETHIAMIN COMPOUND TAB [Concomitant]
  9. EPOGEN [Concomitant]
  10. LASIX [Concomitant]
  11. NORVASC [Concomitant]
  12. HYTRIN [Concomitant]
  13. REMERON [Concomitant]
  14. PROGRAF [Concomitant]
     Dosage: TOTAL DAILY DOSE: 2 MG
     Route: 048
  15. COUMADIN [Concomitant]
     Dates: start: 19980101
  16. ACYCLOVIR SODIUM [Concomitant]
     Route: 048
  17. ALBUTEROL [Concomitant]
     Indication: BRONCHOSPASM
  18. ATROVENT [Concomitant]
  19. CELEXA [Concomitant]
  20. CELLCEPT [Concomitant]
     Dosage: TOTAL DAILY DOSE: 1000 MG
     Route: 048
  21. CELLCEPT [Concomitant]
  22. CUVAR [Concomitant]
  23. CYTOMEL [Concomitant]
  24. DAPSONE [Concomitant]
  25. FLOMAX [Concomitant]
  26. LEVOXYL [Concomitant]
  27. PROTONIX [Concomitant]
  28. WELLBUTRIN XL [Concomitant]
  29. MAGNESIUM SUPPLEMENTATION [Concomitant]
     Indication: MINERAL SUPPLEMENTATION
  30. PHOSLO [Concomitant]
     Indication: SUPPLEMENTATION THERAPY
  31. BETA-AGONIST INHALERS [Concomitant]
     Route: 055
  32. PREDNISONE [Concomitant]
     Indication: POLYMYALGIA RHEUMATICA
  33. EPOGEN [Concomitant]
     Indication: ANAEMIA
     Route: 058
     Dates: start: 20020402, end: 20021015
  34. EPOGEN [Concomitant]
     Route: 058
     Dates: start: 20021016, end: 20030318
  35. EPOGEN [Concomitant]
     Route: 058
     Dates: start: 20010507, end: 20020328
  36. EPOGEN [Concomitant]
     Dosage: WEEKLY BASIS AS NEEDED
     Route: 058
  37. EPOGEN [Concomitant]
     Route: 058
     Dates: start: 20010402, end: 20010506
  38. EPOGEN [Concomitant]
     Route: 058
     Dates: start: 20030409, end: 20030708
  39. EPOGEN [Concomitant]
     Route: 058
     Dates: start: 20030319, end: 20030408
  40. EPOGEN [Concomitant]
     Dosage: Q 5  DAYS
     Route: 058
     Dates: start: 20020329, end: 20020401
  41. EPOGEN [Concomitant]
     Route: 058
     Dates: start: 20030709
  42. ANTIBIOTICS [Concomitant]
     Indication: PERITONITIS
     Dates: start: 20000601
  43. SINGULAIR [Concomitant]
     Dosage: APPROXIMATELY ONE WEEK ONLY; Q PM
     Dates: start: 20000801, end: 20000801
  44. RENAGEL [Concomitant]
     Indication: SUPPLEMENTATION THERAPY
  45. NEPHRO-VITE [Concomitant]
     Indication: SUPPLEMENTATION THERAPY
  46. VITAMIN E [Concomitant]
  47. EFFEXOR [Concomitant]
     Indication: DEPRESSION
  48. HECTOROL [Concomitant]
  49. CIPROFLOXACIN [Concomitant]
     Indication: UPPER RESPIRATORY TRACT INFECTION
     Dates: start: 20040201
  50. ASPIRIN [Concomitant]
     Dates: start: 20010101
  51. PROCRIT [Concomitant]
  52. SYNTHROID [Concomitant]
     Route: 048
  53. CORMAX [Concomitant]
  54. DITROPAN [Concomitant]
  55. ACTONEL [Concomitant]
  56. TYLENOL [Concomitant]
  57. VICODIN [Concomitant]
  58. COUMADIN [Concomitant]
     Route: 048
  59. MYCOPHENOTATE MOFETIL [Concomitant]
  60. TACROLIMUS [Concomitant]
  61. PANTOPRAZOLE [Concomitant]
  62. TAMSULOSIN [Concomitant]
  63. GLUCOSAMINE AND CHONDROITIN [Concomitant]
  64. OMEGA-3 FATTY ACIDS [Concomitant]
  65. CINICALCET [Concomitant]
  66. VIOXX [Concomitant]
  67. PRILOSEC [Concomitant]
  68. COZAAR [Concomitant]
  69. VITAMIN E [Concomitant]
  70. COLACE [Concomitant]
  71. MIRALAX [Concomitant]
  72. 1.5% DEXTROSE DIALYSATE [Concomitant]
     Dosage: SEE NEPHROLOGY NOTE DATED 04-MAY-2001
     Dates: start: 20010101
  73. SINEMET [Concomitant]
     Route: 048
  74. INFLUENZA VIRUS VACCINE TRIVALENT [Concomitant]
     Dosage: SEE NOTE DATED 18-SEP-2002: PRE HD X1 EACH NOV.
     Route: 030
  75. TESTOSTERONE [Concomitant]
     Dosage: UNTIL END 1998
     Dates: end: 19980101
  76. LEVAQUIN [Concomitant]
     Route: 048
     Dates: start: 20040503, end: 20040512
  77. QVAR MDI [Concomitant]
     Dosage: 2 PUFFS Q 12 H
     Route: 055
  78. COMBIVENT [Concomitant]
     Dosage: Q 6 H
     Route: 055
  79. DIFLUCAN [Concomitant]
     Dosage: Q WED
     Route: 048
  80. FERRLECIT [Concomitant]
     Dosage: START DATE AUG/SEP 2005
     Route: 042
  81. ALTACE [Concomitant]
  82. DILTIAZEM [Concomitant]
  83. STEROIDS [Concomitant]
     Dosage: RAPID TAPER
     Dates: start: 20040401
  84. CALCIUM CHLORIDE [Concomitant]
     Dosage: 1/2 AMPULE
     Dates: start: 19980716

REACTIONS (35)
  - ABASIA [None]
  - ALOPECIA [None]
  - ANXIETY [None]
  - ARTHRALGIA [None]
  - BACK PAIN [None]
  - BLISTER [None]
  - BONE PAIN [None]
  - DRY SKIN [None]
  - EMOTIONAL DISTRESS [None]
  - ERYTHEMA [None]
  - FATIGUE [None]
  - GAIT DISTURBANCE [None]
  - HYPERKERATOSIS [None]
  - INJURY [None]
  - JOINT INSTABILITY [None]
  - JOINT RANGE OF MOTION DECREASED [None]
  - JOINT STIFFNESS [None]
  - MOBILITY DECREASED [None]
  - MUSCLE ATROPHY [None]
  - MUSCLE TIGHTNESS [None]
  - MUSCULAR WEAKNESS [None]
  - MYALGIA [None]
  - NEPHROGENIC SYSTEMIC FIBROSIS [None]
  - OEDEMA PERIPHERAL [None]
  - PAIN [None]
  - PEAU D'ORANGE [None]
  - PRURITUS [None]
  - QUALITY OF LIFE DECREASED [None]
  - RASH [None]
  - RASH PAPULAR [None]
  - SKIN HYPERTROPHY [None]
  - SKIN INDURATION [None]
  - SKIN NODULE [None]
  - SKIN TIGHTNESS [None]
  - SUBCUTANEOUS NODULE [None]
